FAERS Safety Report 6744414-3 (Version None)
Quarter: 2010Q2

REPORT INFORMATION
  Report Type: 
  Country: None (occurrence: None)
  Receive Date: 20100527
  Receipt Date: 20100517
  Transmission Date: 20101027
  Serious: Yes (Other)
  Sender: FDA-Public Use
  Company Number: JP-PFIZER INC-2010063515

PATIENT
  Age: 43 Year
  Sex: Female

DRUGS (6)
  1. ZOLOFT [Suspect]
     Dosage: 75 MG PER DAY
     Route: 048
     Dates: start: 20100114
  2. TOLEDOMIN [Suspect]
     Dosage: 75 MG PER DAY
     Route: 048
  3. SEPAZON [Concomitant]
     Route: 048
     Dates: start: 20100114
  4. FLAVONATE [Concomitant]
     Route: 048
     Dates: start: 20100114
  5. BROTIZOLAM [Concomitant]
     Route: 048
     Dates: start: 20100114
  6. FERROUS CITRATE SODIUM [Concomitant]
     Dosage: UNK
     Route: 048
     Dates: start: 20100114

REACTIONS (2)
  - HAEMOGLOBIN ABNORMAL [None]
  - MENORRHAGIA [None]
